FAERS Safety Report 16626784 (Version 3)
Quarter: 2020Q1

REPORT INFORMATION
  Report Type: Spontaneous
  Country: DE (occurrence: DE)
  Receive Date: 20190724
  Receipt Date: 20200320
  Transmission Date: 20200409
  Serious: Yes (Hospitalization, Other)
  Sender: FDA-Public Use
  Company Number: DE-ASCEND THERAPEUTICS-2071265

PATIENT
  Age: 29 Year
  Sex: Female

DRUGS (6)
  1. PROGESTAN (PROGESTERONE)?INDICATION FOR USE: ASSISTED REPRODUCTIVE TEC [Suspect]
     Active Substance: PROGESTERONE
     Dates: start: 20190614
  2. CRINONE [Suspect]
     Active Substance: PROGESTERONE
     Dates: start: 20190617
  3. OVITRELLE (CHORIOGONADOTROPIN ALFA)?INDICATION FOR USE: ASSISTED REPRO [Suspect]
     Active Substance: CHORIOGONADOTROPIN ALFA
     Dates: start: 20190612, end: 20190612
  4. ESTROGEL [Suspect]
     Active Substance: ESTRADIOL
     Indication: ASSISTED REPRODUCTIVE TECHNOLOGY
     Dates: start: 20190614
  5. ORGALUTRAN [Suspect]
     Active Substance: GANIRELIX ACETATE
     Route: 051
     Dates: start: 20190605, end: 20190611
  6. PERGOVERIS (FOLLITROPIN ALFA, LUTROPIN ALFA) (POWDER AND SOLVENT FOR S [Suspect]
     Active Substance: FOLLITROPIN\LUTROPIN ALFA
     Route: 051
     Dates: start: 20190601, end: 20190612

REACTIONS (4)
  - Vomiting [Recovered/Resolved]
  - Ovarian hyperstimulation syndrome [Recovered/Resolved]
  - Nausea [Recovered/Resolved]
  - Abdominal pain lower [Recovered/Resolved]

NARRATIVE: CASE EVENT DATE: 20190626
